FAERS Safety Report 15653096 (Version 4)
Quarter: 2019Q3

REPORT INFORMATION
  Report Type: Report from Study
  Country: CA (occurrence: CA)
  Receive Date: 20181123
  Receipt Date: 20190701
  Transmission Date: 20191004
  Serious: Yes (Death, Hospitalization)
  Sender: FDA-Public Use
  Company Number: CA-ACTELION-A-NJ2018-182096

PATIENT
  Age: 82 Year
  Sex: Male

DRUGS (12)
  1. XARELTO [Concomitant]
     Active Substance: RIVAROXABAN
  2. FUROSEMIDE. [Concomitant]
     Active Substance: FUROSEMIDE
  3. IRON [Concomitant]
     Active Substance: IRON
  4. DUTASTERIDE. [Concomitant]
     Active Substance: DUTASTERIDE
  5. OPSUMIT [Suspect]
     Active Substance: MACITENTAN
     Indication: PULMONARY ARTERIAL HYPERTENSION
     Dosage: 10 MG, QD
     Route: 048
     Dates: start: 20180329, end: 201904
  6. VITAMIN B12 [Concomitant]
     Active Substance: CYANOCOBALAMIN
  7. EMTEC [Concomitant]
  8. TERAZOSIN [Concomitant]
     Active Substance: TERAZOSIN HYDROCHLORIDE
  9. IRBESARTAN. [Concomitant]
     Active Substance: IRBESARTAN
  10. RALIVIA [Concomitant]
     Active Substance: TRAMADOL HYDROCHLORIDE
  11. HYDRAZINE [Concomitant]
     Active Substance: HYDRAZINE SULFATE
  12. GABAPENTIN. [Concomitant]
     Active Substance: GABAPENTIN

REACTIONS (3)
  - Death [Fatal]
  - Palliative care [Unknown]
  - Hospitalisation [Unknown]

NARRATIVE: CASE EVENT DATE: 201904
